FAERS Safety Report 4559183-5 (Version None)
Quarter: 2005Q1

REPORT INFORMATION
  Report Type: 
  Country: None (occurrence: None)
  Receive Date: 20050121
  Receipt Date: 20050121
  Transmission Date: 20050727
  Serious: Yes (Hospitalization)
  Sender: FDA-Public Use
  Company Number: None

PATIENT
  Sex: Male
  Weight: 85.7298 kg

DRUGS (19)
  1. SIMVASTATIN [Suspect]
     Indication: HYPERLIPIDAEMIA
     Dosage: 40MG   DAILY   ORAL
     Route: 048
     Dates: start: 19980101, end: 20041106
  2. NICOTINE [Concomitant]
  3. NICOTINE POLACRILEX [Concomitant]
  4. CEPHALEXIN [Concomitant]
  5. GATIFLOXACIN [Concomitant]
  6. CLOPIDOGREL [Concomitant]
  7. ACETAMINOPHEN [Concomitant]
  8. ASPIRIN [Concomitant]
  9. PAROXETINE HCL [Concomitant]
  10. TRAZODONE HCL [Concomitant]
  11. METOPROLOL TARTRATE [Concomitant]
  12. NITROGLYCERIN [Concomitant]
  13. LISINOPRIL [Concomitant]
  14. NAPROXEN [Concomitant]
  15. GUAIFENESIN  DM AF/SF [Concomitant]
  16. PSEUDO 60/TRIPROLIDINE [Concomitant]
  17. FOLIC ACID [Concomitant]
  18. THIAMINE [Concomitant]
  19. VITAMIN E [Concomitant]

REACTIONS (1)
  - RHABDOMYOLYSIS [None]
